FAERS Safety Report 9224806 (Version 3)
Quarter: 2019Q2

REPORT INFORMATION
  Report Type: Report from Study
  Country: FR (occurrence: FR)
  Receive Date: 20130411
  Receipt Date: 20190531
  Transmission Date: 20190711
  Serious: Yes (Hospitalization, Other)
  Sender: FDA-Public Use
  Company Number: FR-ASTELLAS-2013EU003199

PATIENT
  Age: 55 Year
  Sex: Male

DRUGS (8)
  1. VIREAD [Concomitant]
     Active Substance: TENOFOVIR DISOPROXIL FUMARATE
     Indication: HEPATITIS B
     Route: 048
     Dates: start: 20120615
  2. AMLOR [Concomitant]
     Active Substance: AMLODIPINE BESYLATE
     Indication: HYPERTENSION
     Route: 048
     Dates: start: 20120620
  3. INEGY [Concomitant]
     Active Substance: EZETIMIBE\SIMVASTATIN
     Indication: DYSLIPIDAEMIA
     Dosage: UNK, ONCE DAILY
     Route: 048
     Dates: start: 20120615
  4. KARDEGIC [Concomitant]
     Active Substance: ASPIRIN DL-LYSINE
     Indication: THROMBOSIS PROPHYLAXIS
     Route: 048
     Dates: start: 20120615
  5. CELLCEPT [Suspect]
     Active Substance: MYCOPHENOLATE MOFETIL\MYCOPHENOLATE MOFETIL HYDROCHLORIDE
     Indication: PROPHYLAXIS AGAINST TRANSPLANT REJECTION
     Route: 048
     Dates: start: 20120615
  6. ROVALCYTE [Concomitant]
     Active Substance: VALGANCICLOVIR HYDROCHLORIDE
     Indication: ANTIVIRAL PROPHYLAXIS
     Route: 048
     Dates: start: 20120616, end: 20120915
  7. INSULIN                            /00646001/ [Concomitant]
     Active Substance: INSULIN NOS
     Indication: DIABETES MELLITUS
     Dosage: UNK UNK, ONCE AS NEEDED
     Route: 058
     Dates: start: 20120617
  8. TACROLIMUS. [Suspect]
     Active Substance: TACROLIMUS
     Indication: PROPHYLAXIS AGAINST TRANSPLANT REJECTION
     Route: 048
     Dates: start: 20120714

REACTIONS (15)
  - Lymphocele [Recovered/Resolved]
  - Cough [Recovered/Resolved]
  - Enterococcal infection [Recovered/Resolved]
  - Acute kidney injury [Recovered/Resolved]
  - Histology abnormal [Recovered/Resolved]
  - Enterococcal infection [Recovered/Resolved]
  - Diarrhoea [Recovering/Resolving]
  - Iron deficiency [Recovering/Resolving]
  - Insomnia [Unknown]
  - Nausea [Recovered/Resolved]
  - Thrombocytosis [Recovered/Resolved]
  - Bacterial pyelonephritis [Recovered/Resolved]
  - Vitreous haemorrhage [Recovered/Resolved]
  - Bacterial pyelonephritis [Recovered/Resolved]
  - Oedema peripheral [Recovered/Resolved]

NARRATIVE: CASE EVENT DATE: 20120615
